FAERS Safety Report 11203811 (Version 2)
Quarter: 2015Q3

REPORT INFORMATION
  Report Type: Spontaneous
  Country: JP (occurrence: JP)
  Receive Date: 20150619
  Receipt Date: 20150715
  Transmission Date: 20151125
  Serious: Yes (Life-Threatening, Other)
  Sender: FDA-Public Use
  Company Number: JP-GE HEALTHCARE MEDICAL DIAGNOSTICS-OMPQ-PR-1506L-0935

PATIENT
  Age: 59 Year
  Sex: Female

DRUGS (11)
  1. OMNIPAQUE [Suspect]
     Active Substance: IOHEXOL
     Indication: DIAGNOSTIC PROCEDURE
  2. ADALAT [Concomitant]
     Active Substance: NIFEDIPINE
  3. DIOVAN [Concomitant]
     Active Substance: VALSARTAN
  4. PLETAAL [Concomitant]
     Active Substance: CILOSTAZOL
     Dates: start: 20131105
  5. CONIEL [Concomitant]
     Active Substance: BENIDIPINE HYDROCHLORIDE
     Dates: start: 20131121
  6. METHYCOBAL [Concomitant]
     Active Substance: METHYLCOBALAMIN
  7. SIGMART [Concomitant]
     Active Substance: NICORANDIL
     Dates: start: 20131121
  8. OMNIPAQUE [Suspect]
     Active Substance: IOHEXOL
     Indication: PRODUCT USED FOR UNKNOWN INDICATION
     Route: 065
     Dates: start: 20131121, end: 20131121
  9. VISIPAQUE [Suspect]
     Active Substance: IODIXANOL
     Indication: DIAGNOSTIC PROCEDURE
  10. VISIPAQUE [Suspect]
     Active Substance: IODIXANOL
     Indication: PRODUCT USED FOR UNKNOWN INDICATION
     Route: 013
     Dates: start: 20131125, end: 20131125
  11. MEVALOTIN [Concomitant]
     Active Substance: PRAVASTATIN SODIUM

REACTIONS (3)
  - Kounis syndrome [Unknown]
  - Anaphylactic shock [Recovered/Resolved]
  - Anaphylactic shock [Recovering/Resolving]

NARRATIVE: CASE EVENT DATE: 20131121
